FAERS Safety Report 5225200-2 (Version None)
Quarter: 2007Q1

REPORT INFORMATION
  Report Type: 
  Country: None (occurrence: None)
  Receive Date: 20070131
  Receipt Date: 20070122
  Transmission Date: 20070707
  Serious: Yes (Other)
  Sender: FDA-Public Use
  Company Number: CH-ROCHE-471919

PATIENT
  Age: 24 Year
  Sex: Female
  Weight: 62.7 kg

DRUGS (1)
  1. ROACCUTAN [Suspect]
     Indication: DRUG USE FOR UNKNOWN INDICATION
     Dosage: ISOTRETINOIN WAS STOPPED IMMEDIATELY AFTER POSITIVE PREGNANCY TEST.
     Route: 048
     Dates: start: 20060615, end: 20060915

REACTIONS (1)
  - ABORTION INDUCED [None]
